FAERS Safety Report 12827954 (Version 1)
Quarter: 2016Q4

REPORT INFORMATION
  Report Type: Spontaneous
  Country: GB (occurrence: GB)
  Receive Date: 20161007
  Receipt Date: 20161007
  Transmission Date: 20170207
  Serious: Yes (Hospitalization)
  Sender: FDA-Public Use
  Company Number: GB-PFIZER INC-2016461793

PATIENT
  Age: 85 Year
  Sex: Female

DRUGS (12)
  1. DOXAZOSIN MESILATE [Suspect]
     Active Substance: DOXAZOSIN MESYLATE
     Indication: HYPERTENSION
     Route: 048
     Dates: end: 20160616
  2. DOXYCYCLINE. [Concomitant]
     Active Substance: DOXYCYCLINE
  3. MOVELAT /00479601/ [Concomitant]
  4. TIOTROPIUM BROMIDE [Concomitant]
     Active Substance: TIOTROPIUM BROMIDE
  5. SIMVASTATIN. [Concomitant]
     Active Substance: SIMVASTATIN
  6. DILZEM [Suspect]
     Active Substance: DILTIAZEM
     Indication: PROPHYLAXIS
     Dosage: 60 MG, 2X/DAY
     Route: 048
     Dates: end: 20160616
  7. PARACETAMOL [Concomitant]
     Active Substance: ACETAMINOPHEN
  8. PREDNISOLONE. [Concomitant]
     Active Substance: PREDNISOLONE
  9. FUROSEMIDE. [Concomitant]
     Active Substance: FUROSEMIDE
  10. SERETIDE [Concomitant]
     Active Substance: FLUTICASONE PROPIONATE\SALMETEROL XINAFOATE
  11. ASPIRIN (E.C.) [Concomitant]
     Active Substance: ASPIRIN
  12. SALBUTAMOL [Concomitant]
     Active Substance: ALBUTEROL

REACTIONS (5)
  - Bradycardia [Recovered/Resolved]
  - Presyncope [Recovered/Resolved]
  - Trifascicular block [Unknown]
  - Dizziness [Recovered/Resolved]
  - Ventricular extrasystoles [Unknown]

NARRATIVE: CASE EVENT DATE: 201606
